FAERS Safety Report 8988991 (Version 1)
Quarter: 2012Q4

REPORT INFORMATION
  Report Type: Spontaneous
  Country: US (occurrence: None)
  Receive Date: 20121224
  Receipt Date: 20121224
  Transmission Date: 20130627
  Serious: Yes (Hospitalization)
  Sender: FDA-Public Use
  Company Number: None

PATIENT
  Age: 70 Year
  Sex: Male
  Weight: 78.8 kg

DRUGS (1)
  1. DAPTOMYCIN [Suspect]
     Indication: OSTEOMYLITIS
     Dosage: 500 MG EVERY DAY IV
     Route: 042
     Dates: start: 20120803, end: 20120911

REACTIONS (6)
  - Hyperglycaemia [None]
  - Pyrexia [None]
  - Chills [None]
  - Eosinophilia [None]
  - Pulmonary eosinophilia [None]
  - Red blood cell sedimentation rate increased [None]
